FAERS Safety Report 4595505-7 (Version None)
Quarter: 2005Q1

REPORT INFORMATION
  Report Type: 
  Country: None (occurrence: None)
  Receive Date: 20050224
  Receipt Date: 20050209
  Transmission Date: 20050727
  Serious: Yes (Congenital Anomaly)
  Sender: FDA-Public Use
  Company Number: US_0408104599

PATIENT
  Age: 2 Day
  Sex: Male
  Weight: 3 kg

DRUGS (1)
  1. PROZAC [Suspect]
     Dates: start: 20030101

REACTIONS (9)
  - ABDOMINAL PAIN [None]
  - AGITATION NEONATAL [None]
  - DRUG EXPOSURE DURING PREGNANCY [None]
  - HYPERVIGILANCE [None]
  - HYPOSPADIAS [None]
  - NEONATAL DISORDER [None]
  - RESTLESSNESS [None]
  - SLEEP DISORDER [None]
  - VOMITING NEONATAL [None]
